FAERS Safety Report 4824320-1 (Version None)
Quarter: 2005Q4

REPORT INFORMATION
  Report Type: 
  Country: None (occurrence: None)
  Receive Date: 20051109
  Receipt Date: 20040831
  Transmission Date: 20060501
  Serious: Yes (Life-Threatening, Hospitalization, Disabling, Other)
  Sender: FDA-Public Use
  Company Number: PT-MERCK-0409PRT00001

PATIENT
  Age: 56 Year
  Sex: Female
  Weight: 47 kg

DRUGS (1)
  1. FOSAMAX [Suspect]
     Indication: OSTEOPOROSIS PROPHYLAXIS
     Route: 048
     Dates: start: 20030810, end: 20040815

REACTIONS (11)
  - ARTHRALGIA [None]
  - BONE PAIN [None]
  - BREAST CANCER [None]
  - CHEST PAIN [None]
  - FASCIITIS [None]
  - HAND DEFORMITY [None]
  - HYPOKINESIA [None]
  - LIPOMA [None]
  - LOCAL SWELLING [None]
  - MYALGIA [None]
  - NODULE [None]
